FAERS Safety Report 13568446 (Version 1)
Quarter: 2017Q2

REPORT INFORMATION
  Report Type: Spontaneous
  Country: FR (occurrence: FR)
  Receive Date: 20170522
  Receipt Date: 20170522
  Transmission Date: 20170830
  Serious: Yes (Other)
  Sender: FDA-Public Use
  Company Number: FR-PFIZER INC-2017213848

PATIENT
  Age: 63 Year
  Sex: Female

DRUGS (5)
  1. SOLUPRED /00016201/ [Concomitant]
     Active Substance: PREDNISOLONE
  2. PRIMPERAN [Concomitant]
     Active Substance: METOCLOPRAMIDE HYDROCHLORIDE
  3. EMEND [Concomitant]
     Active Substance: APREPITANT
  4. ENDOXAN [Suspect]
     Active Substance: CYCLOPHOSPHAMIDE
     Dosage: 900 MG, SINGLE
     Route: 042
     Dates: start: 20151207, end: 20151207
  5. DOCETAXEL. [Suspect]
     Active Substance: DOCETAXEL
     Dosage: 110 MG, SINGLE
     Route: 042
     Dates: start: 20151207, end: 20151207

REACTIONS (7)
  - Nausea [Recovered/Resolved]
  - Weight decreased [Unknown]
  - Diarrhoea [Recovered/Resolved]
  - Abdominal pain [Recovered/Resolved]
  - Vomiting [Recovered/Resolved]
  - Anorectal discomfort [Recovered/Resolved]
  - Asthenia [Recovered/Resolved]

NARRATIVE: CASE EVENT DATE: 20151210
